FAERS Safety Report 11275472 (Version 1)
Quarter: 2015Q3

REPORT INFORMATION
  Report Type: Spontaneous
  Country: US (occurrence: US)
  Receive Date: 20150716
  Receipt Date: 20150716
  Transmission Date: 20151125
  Serious: Yes (Other)
  Sender: FDA-Public Use
  Company Number: US-ASTRAZENECA-2015SE67037

PATIENT
  Sex: Female

DRUGS (14)
  1. PROLIXIN [Suspect]
     Active Substance: FLUPHENAZINE HYDROCHLORIDE
     Route: 065
  2. MULTIVITAMIN [Concomitant]
     Active Substance: VITAMINS
  3. VITAMIN C [Suspect]
     Active Substance: ASCORBIC ACID
     Route: 065
  4. COGENTIN [Suspect]
     Active Substance: BENZTROPINE MESYLATE
     Indication: PROPHYLAXIS
     Route: 065
  5. TOPAMAX [Suspect]
     Active Substance: TOPIRAMATE
     Indication: WEIGHT
     Route: 065
  6. COLACE [Suspect]
     Active Substance: DOCUSATE SODIUM
     Indication: FAECES SOFT
     Dosage: TWO TIMES A DAY
     Route: 065
  7. TOPAMAX [Suspect]
     Active Substance: TOPIRAMATE
     Indication: WEIGHT
     Route: 065
  8. TOPAMAX [Suspect]
     Active Substance: TOPIRAMATE
     Indication: AFFECTIVE DISORDER
     Route: 065
  9. TOPAMAX [Suspect]
     Active Substance: TOPIRAMATE
     Indication: AFFECTIVE DISORDER
     Route: 065
  10. BRILETT [Suspect]
     Active Substance: VITAMINS
     Route: 065
  11. LITHIUM. [Suspect]
     Active Substance: LITHIUM
     Indication: AFFECTIVE DISORDER
     Dosage: TWO TIMES A DAY
     Route: 065
  12. GEODON [Suspect]
     Active Substance: ZIPRASIDONE HYDROCHLORIDE\ZIPRASIDONE MESYLATE
     Route: 065
  13. SEROQUEL [Suspect]
     Active Substance: QUETIAPINE FUMARATE
     Route: 048
  14. LOXAPINE. [Suspect]
     Active Substance: LOXAPINE
     Route: 065

REACTIONS (9)
  - Seizure [Unknown]
  - Drug intolerance [Not Recovered/Not Resolved]
  - Memory impairment [Unknown]
  - Disturbance in attention [Unknown]
  - Visual impairment [Unknown]
  - Drug hypersensitivity [Unknown]
  - Bladder disorder [Unknown]
  - Tremor [Unknown]
  - Syncope [Unknown]
